FAERS Safety Report 19965937 (Version 1)
Quarter: 2021Q4

REPORT INFORMATION
  Report Type: Spontaneous
  Country: ES (occurrence: ES)
  Receive Date: 20211019
  Receipt Date: 20211019
  Transmission Date: 20220303
  Serious: Yes (Hospitalization)
  Sender: FDA-Public Use
  Company Number: ES-DRREDDYS-LIT/SPN/21/0142623

PATIENT
  Age: 26 Year
  Sex: Female

DRUGS (5)
  1. AZACITIDINE [Suspect]
     Active Substance: AZACITIDINE
     Indication: Product used for unknown indication
     Dosage: DAYS 1-7 OF EACH 28 DAY CYCLE
     Dates: start: 202007
  2. AZACITIDINE [Suspect]
     Active Substance: AZACITIDINE
     Dates: start: 202010
  3. AZACITIDINE [Suspect]
     Active Substance: AZACITIDINE
     Dosage: THIRD CYCLE
  4. AZACITIDINE [Suspect]
     Active Substance: AZACITIDINE
     Dosage: REINITIATED AT A DOSE OF 100 MG/DAY
  5. POSACONAZOLE [Concomitant]
     Active Substance: POSACONAZOLE
     Indication: Antifungal prophylaxis

REACTIONS (5)
  - Myelosuppression [Unknown]
  - Paronychia [Recovered/Resolved]
  - Asthenia [Unknown]
  - Febrile neutropenia [Unknown]
  - Drug ineffective [Unknown]
